FAERS Safety Report 13212931 (Version 2)
Quarter: 2018Q1

REPORT INFORMATION
  Report Type: Spontaneous
  Country: US (occurrence: US)
  Receive Date: 20170209
  Receipt Date: 20180116
  Transmission Date: 20180508
  Serious: No
  Sender: FDA-Public Use
  Company Number: US-ALLERGAN-1672781US

PATIENT
  Age: 55 Year
  Sex: Male

DRUGS (1)
  1. BOTOX COSMETIC [Suspect]
     Active Substance: ONABOTULINUMTOXINA
     Indication: OCCUPATIONAL EXPOSURE TO PRODUCT
     Dosage: UNK, SINGLE

REACTIONS (3)
  - Occupational exposure to product [Unknown]
  - Product quality issue [Unknown]
  - Ocular hyperaemia [Recovered/Resolved]
